FAERS Safety Report 8060434-3 (Version None)
Quarter: 2012Q1

REPORT INFORMATION
  Report Type: 
  Country: None (occurrence: None)
  Receive Date: 20120120
  Receipt Date: 20120111
  Transmission Date: 20120608
  Serious: Yes (Other)
  Sender: FDA-Public Use
  Company Number: FR-GLAXOSMITHKLINE-B0743544A

PATIENT
  Sex: Male

DRUGS (3)
  1. BACTRIM [Suspect]
     Indication: PRODUCT USED FOR UNKNOWN INDICATION
     Dosage: 1TAB TWICE PER DAY
     Route: 048
     Dates: start: 20110719, end: 20110722
  2. ZOVIRAX [Suspect]
     Indication: PRODUCT USED FOR UNKNOWN INDICATION
     Dosage: 1G THREE TIMES PER DAY
     Route: 042
     Dates: start: 20110709, end: 20110723
  3. MYOLASTAN [Concomitant]

REACTIONS (3)
  - CHOLESTASIS [None]
  - AGRANULOCYTOSIS [None]
  - CYTOLYTIC HEPATITIS [None]
